FAERS Safety Report 11098738 (Version 5)
Quarter: 2015Q3

REPORT INFORMATION
  Report Type: Report from Study
  Country: US (occurrence: US)
  Receive Date: 20150507
  Receipt Date: 20150708
  Transmission Date: 20151125
  Serious: Yes (Hospitalization)
  Sender: FDA-Public Use
  Company Number: US-ACTELION-A-NJ2015-117673

PATIENT
  Age: 70 Year
  Sex: Female

DRUGS (2)
  1. VENTAVIS [Suspect]
     Active Substance: ILOPROST
     Indication: PULMONARY ARTERIAL HYPERTENSION
     Dosage: UNK
     Route: 055
  2. TRACLEER [Suspect]
     Active Substance: BOSENTAN
     Indication: PULMONARY ARTERIAL HYPERTENSION
     Dosage: 12 MG, UNK
     Route: 048

REACTIONS (11)
  - Thrombophlebitis superficial [Unknown]
  - Fall [Unknown]
  - Pain [Unknown]
  - Renal disorder [Unknown]
  - Cellulitis [Unknown]
  - Limb injury [Unknown]
  - Dyspnoea [Unknown]
  - Swelling [Unknown]
  - Presyncope [Unknown]
  - Asthenia [Unknown]
  - Activities of daily living impaired [Unknown]

NARRATIVE: CASE EVENT DATE: 201506
